FAERS Safety Report 7201988-6 (Version None)
Quarter: 2010Q4

REPORT INFORMATION
  Report Type: 
  Country: None (occurrence: None)
  Receive Date: 20101229
  Receipt Date: 20101220
  Transmission Date: 20110411
  Serious: Yes (Hospitalization)
  Sender: FDA-Public Use
  Company Number: FR-JNJFOC-20101007428

PATIENT
  Sex: Female
  Weight: 52 kg

DRUGS (8)
  1. DURAGESIC-100 [Suspect]
     Indication: BONE PAIN
     Dosage: 1800 UG PER DAY
     Route: 042
  2. REVLIMID [Suspect]
     Indication: MULTIPLE MYELOMA
     Route: 048
  3. REVLIMID [Suspect]
     Route: 048
  4. DEXAMETHASONE [Suspect]
     Indication: MULTIPLE MYELOMA
     Route: 048
  5. DEXAMETHASONE [Suspect]
     Route: 048
  6. DEXAMETHASONE [Suspect]
     Route: 048
  7. DEXAMETHASONE [Suspect]
     Route: 048
  8. VELCADE [Suspect]
     Indication: PRODUCT USED FOR UNKNOWN INDICATION
     Route: 065

REACTIONS (4)
  - INTENTIONAL DRUG MISUSE [None]
  - MUCOSAL INFLAMMATION [None]
  - NAUSEA [None]
  - VOMITING [None]
